FAERS Safety Report 23308879 (Version 1)
Quarter: 2023Q4

REPORT INFORMATION
  Report Type: Spontaneous
  Country: US (occurrence: None)
  Receive Date: 20231218
  Receipt Date: 20231218
  Transmission Date: 20240110
  Serious: No
  Sender: FDA-Public Use
  Company Number: 2023A249120

PATIENT
  Sex: Female
  Weight: 72.6 kg

DRUGS (1)
  1. TEZSPIRE [Suspect]
     Active Substance: TEZEPELUMAB-EKKO
     Indication: Hypersensitivity
     Route: 058
     Dates: start: 20230201

REACTIONS (1)
  - Arthralgia [Unknown]
